FAERS Safety Report 25321015 (Version 1)
Quarter: 2025Q2

REPORT INFORMATION
  Report Type: Spontaneous
  Country: US (occurrence: US)
  Receive Date: 20250515
  Receipt Date: 20250515
  Transmission Date: 20250716
  Serious: No
  Sender: SANOFI AVENTIS
  Company Number: US-SA-2025SA137217

PATIENT
  Age: 36 Year
  Sex: Female

DRUGS (1)
  1. XENPOZYME [Suspect]
     Active Substance: OLIPUDASE ALFA-RPCP
     Dosage: 160 MG, BIM
     Route: 065

REACTIONS (1)
  - Infusion site swelling [Unknown]

NARRATIVE: CASE EVENT DATE: 20250509
